FAERS Safety Report 11375764 (Version 2)
Quarter: 2015Q4

REPORT INFORMATION
  Report Type: Spontaneous
  Country: JP (occurrence: JP)
  Receive Date: 20150813
  Receipt Date: 20151123
  Transmission Date: 20160304
  Serious: Yes (Hospitalization, Other)
  Sender: FDA-Public Use
  Company Number: JP-GLAXOSMITHKLINE-JP2015JPN092445

PATIENT
  Age: 66 Year
  Sex: Male
  Weight: 61 kg

DRUGS (4)
  1. LANDSEN [Suspect]
     Active Substance: CLONAZEPAM
     Dosage: UNK
     Route: 048
     Dates: start: 201407
  2. SORENTMIN [Suspect]
     Active Substance: BROTIZOLAM
     Dosage: UNK
     Route: 048
     Dates: start: 201407
  3. LAMICTAL [Suspect]
     Active Substance: LAMOTRIGINE
     Indication: EPILEPSY
     Dosage: 150 MG, BID
     Route: 048
     Dates: start: 20140704, end: 20140805
  4. ACETAMINOPHEN. [Suspect]
     Active Substance: ACETAMINOPHEN
     Dosage: UNK
     Route: 048

REACTIONS (14)
  - Oral mucosa erosion [Recovering/Resolving]
  - Erythema [Recovering/Resolving]
  - Lip erosion [Recovering/Resolving]
  - Lip blister [Recovering/Resolving]
  - Eczema [Recovering/Resolving]
  - Skin erosion [Recovering/Resolving]
  - Scrotal ulcer [Recovering/Resolving]
  - Erythema of eyelid [Unknown]
  - Epidermal necrosis [Unknown]
  - Pyrexia [Unknown]
  - Blister [Recovering/Resolving]
  - Ocular hyperaemia [Unknown]
  - Eye discharge [Unknown]
  - Stevens-Johnson syndrome [Recovered/Resolved]

NARRATIVE: CASE EVENT DATE: 20140730
